FAERS Safety Report 16461558 (Version 1)
Quarter: 2019Q2

REPORT INFORMATION
  Report Type: Spontaneous
  Country: US (occurrence: US)
  Receive Date: 20190621
  Receipt Date: 20190621
  Transmission Date: 20190711
  Serious: Yes (Other)
  Sender: FDA-Public Use
  Company Number: US-LUPIN PHARMACEUTICALS INC.-2019-03792

PATIENT
  Age: 60 Year
  Sex: Female

DRUGS (1)
  1. TEMAZEPAM CAPSULES, USP, 15 MG [Suspect]
     Active Substance: TEMAZEPAM
     Indication: PRODUCT USED FOR UNKNOWN INDICATION
     Dosage: UNK
     Route: 065

REACTIONS (7)
  - Influenza like illness [Unknown]
  - Feeling abnormal [Unknown]
  - Drug ineffective [Unknown]
  - Micturition urgency [Unknown]
  - Nausea [Unknown]
  - Insomnia [Unknown]
  - Malaise [Unknown]
